FAERS Safety Report 7474962-2 (Version None)
Quarter: 2011Q2

REPORT INFORMATION
  Report Type: 
  Country: None (occurrence: None)
  Receive Date: 20110512
  Receipt Date: 20110503
  Transmission Date: 20111010
  Serious: Yes (Life-Threatening, Hospitalization)
  Sender: FDA-Public Use
  Company Number: US-CELGENEUS-163-21880-11050388

PATIENT
  Sex: Male
  Weight: 101.24 kg

DRUGS (5)
  1. ACYCLOVIR [Concomitant]
     Route: 065
  2. LABETALOL [Concomitant]
     Route: 065
  3. TRIAMTERENE AND HYDROCHLOROTHIAZIDE [Concomitant]
     Route: 065
  4. REVLIMID [Suspect]
     Dosage: 10 MILLIGRAM
     Route: 048
     Dates: start: 20110407, end: 20110424
  5. AVAPRO [Concomitant]
     Route: 065

REACTIONS (9)
  - ELECTROLYTE IMBALANCE [None]
  - WHITE BLOOD CELL COUNT DECREASED [None]
  - RENAL FAILURE [None]
  - FLUID RETENTION [None]
  - RED BLOOD CELL COUNT DECREASED [None]
  - DEHYDRATION [None]
  - BACTERIAL INFECTION [None]
  - LOSS OF CONSCIOUSNESS [None]
  - PLATELET COUNT DECREASED [None]
